FAERS Safety Report 6222178-X (Version None)
Quarter: 2009Q2

REPORT INFORMATION
  Report Type: 
  Country: None (occurrence: None)
  Receive Date: 20090611
  Receipt Date: 20090606
  Transmission Date: 20091009
  Serious: Yes (Death, Other)
  Sender: FDA-Public Use
  Company Number: CN-ROCHE-636555

PATIENT
  Sex: Female

DRUGS (1)
  1. CELLCEPT [Suspect]
     Route: 048
     Dates: start: 20090407, end: 20090504

REACTIONS (3)
  - CHEST DISCOMFORT [None]
  - EATING DISORDER [None]
  - PLEURAL EFFUSION [None]
